FAERS Safety Report 15603928 (Version 8)
Quarter: 2019Q1

REPORT INFORMATION
  Report Type: Report from Study
  Country: US (occurrence: US)
  Receive Date: 20181109
  Receipt Date: 20190325
  Transmission Date: 20190417
  Serious: Yes (Hospitalization)
  Sender: FDA-Public Use
  Company Number: US-ACTELION-A-US2018-175254

PATIENT
  Sex: Female
  Weight: 90.7 kg

DRUGS (5)
  1. TYVASO [Concomitant]
     Active Substance: TREPROSTINIL
     Dosage: 6 BREATHS QID
     Route: 055
     Dates: end: 201811
  2. DILTIAZEM. [Concomitant]
     Active Substance: DILTIAZEM
  3. TRACLEER [Suspect]
     Active Substance: BOSENTAN
     Indication: PULMONARY ARTERIAL HYPERTENSION
     Dosage: 125 MG, BID
     Route: 048
     Dates: start: 2004
  4. ELIQUIS [Concomitant]
     Active Substance: APIXABAN
  5. ORENITRAM [Concomitant]
     Active Substance: TREPROSTINIL
     Dosage: 0.25 MG, TID
     Dates: start: 201811

REACTIONS (8)
  - Migraine [Unknown]
  - Gastric disorder [Unknown]
  - Oxygen saturation decreased [Unknown]
  - Therapy change [Unknown]
  - Nasopharyngitis [Unknown]
  - Continuous positive airway pressure [Unknown]
  - Headache [Not Recovered/Not Resolved]
  - Constipation [Unknown]
